FAERS Safety Report 14595108 (Version 1)
Quarter: 2018Q1

REPORT INFORMATION
  Report Type: Spontaneous
  Country: US (occurrence: US)
  Receive Date: 20180302
  Receipt Date: 20180302
  Transmission Date: 20180509
  Serious: No
  Sender: FDA-Public Use
  Company Number: US-AKORN PHARMACEUTICALS-2017AKN00212

PATIENT
  Sex: Male
  Weight: 68.27 kg

DRUGS (3)
  1. CLARAVIS [Suspect]
     Active Substance: ISOTRETINOIN
     Indication: ACNE CYSTIC
     Dosage: 30 MG, 1X/DAY; TOTAL OF 30 MG QAM AND 40 MG QHS
     Route: 048
     Dates: start: 20161108, end: 20170214
  2. MYORISAN [Suspect]
     Active Substance: ISOTRETINOIN
     Indication: ACNE CYSTIC
     Dosage: 40 MG, 1X/DAY; TOTAL OF 30 MG QAM AND 40 MG QHS
     Route: 048
     Dates: start: 20160824, end: 20170214
  3. MYORISAN [Suspect]
     Active Substance: ISOTRETINOIN
     Indication: ACNE CYSTIC
     Dosage: 30 MG, 1X/DAY; TOTAL OF 30 MG QAM AND 40 MG QHS
     Route: 048
     Dates: start: 20160824, end: 2016

REACTIONS (1)
  - Muscle spasms [Recovered/Resolved]
